FAERS Safety Report 10068844 (Version 2)
Quarter: 2014Q2

REPORT INFORMATION
  Report Type: Spontaneous
  Country: GR (occurrence: GR)
  Receive Date: 20140409
  Receipt Date: 20140409
  Transmission Date: 20141212
  Serious: Yes (Other)
  Sender: FDA-Public Use
  Company Number: PHHY2014GR031880

PATIENT
  Sex: 0

DRUGS (10)
  1. TASIGNA [Suspect]
     Indication: CHRONIC MYELOID LEUKAEMIA
     Dosage: 800 MG, PER DAY
  2. TASIGNA [Suspect]
     Dosage: 400 MG
  3. EXFORGE [Concomitant]
  4. ALOPERIDIN [Concomitant]
  5. ZOLOFT [Concomitant]
  6. HYPOLOC [Concomitant]
  7. EZETIMIBE [Concomitant]
  8. LOVASTATIN [Concomitant]
  9. LEVOTHYROXINE SODIUM [Concomitant]
  10. AKINETON [Concomitant]

REACTIONS (2)
  - Jaundice [Unknown]
  - Blood bilirubin increased [Recovered/Resolved]
